FAERS Safety Report 4766797-6 (Version None)
Quarter: 2005Q3

REPORT INFORMATION
  Report Type: 
  Country: None (occurrence: None)
  Receive Date: 20050912
  Receipt Date: 20050830
  Transmission Date: 20060218
  Serious: Yes (Other)
  Sender: FDA-Public Use
  Company Number: 2005US001217

PATIENT
  Sex: Male

DRUGS (2)
  1. PROTOPIC [Suspect]
     Dosage: TOPICAL
     Route: 061
     Dates: start: 20020201, end: 20030901
  2. PROTOPIC [Suspect]
     Dosage: TOPICAL
     Route: 061
     Dates: start: 20030901

REACTIONS (1)
  - NON-HODGKIN'S LYMPHOMA [None]
